FAERS Safety Report 6702273-9 (Version None)
Quarter: 2010Q2

REPORT INFORMATION
  Report Type: 
  Country: None (occurrence: None)
  Receive Date: 20100429
  Receipt Date: 20100407
  Transmission Date: 20101027
  Serious: Yes (Other)
  Sender: FDA-Public Use
  Company Number: PHHY2010US26407

PATIENT
  Sex: Male

DRUGS (1)
  1. MYFORTIC [Suspect]

REACTIONS (4)
  - DRUG HYPERSENSITIVITY [None]
  - DRUG INTOLERANCE [None]
  - HAEMATOCRIT DECREASED [None]
  - RENAL TRANSPLANT [None]
